FAERS Safety Report 6335417-1 (Version None)
Quarter: 2009Q3

REPORT INFORMATION
  Report Type: 
  Country: None (occurrence: None)
  Receive Date: 20090831
  Receipt Date: 20090826
  Transmission Date: 20100115
  Serious: Yes (Death, Other)
  Sender: FDA-Public Use
  Company Number: PHHY2009GB01090

PATIENT
  Sex: Male
  Weight: 79.5 kg

DRUGS (2)
  1. RITALIN [Suspect]
     Indication: ATTENTION DEFICIT/HYPERACTIVITY DISORDER
     Route: 048
  2. RITALIN [Suspect]
     Indication: OPPOSITIONAL DEFIANT DISORDER

REACTIONS (6)
  - AGGRESSION [None]
  - CHOKING [None]
  - COMPLETED SUICIDE [None]
  - FRUSTRATION [None]
  - SELF-INJURIOUS IDEATION [None]
  - UNRESPONSIVE TO STIMULI [None]
